FAERS Safety Report 5179716-8 (Version None)
Quarter: 2006Q4

REPORT INFORMATION
  Report Type: 
  Country: None (occurrence: None)
  Receive Date: 20061212
  Receipt Date: 20061129
  Transmission Date: 20070319
  Serious: Yes (Death, Hospitalization, Congenital Anomaly)
  Sender: FDA-Public Use
  Company Number: 2006054853

PATIENT
  Age: 67 Year
  Sex: Male
  Weight: 66 kg

DRUGS (6)
  1. SUTENT [Suspect]
     Indication: METASTATIC RENAL CELL CARCINOMA
     Dosage: 50 MG (50 MG, 1 IN 1 D), ORAL
     Route: 048
     Dates: start: 20060330, end: 20060419
  2. MST (MORPHINE SULFATE) [Suspect]
     Indication: METASTATIC RENAL CELL CARCINOMA
     Dosage: 30 MG (10 MG, 3 IN 1 D), ORAL
     Route: 048
     Dates: end: 20060420
  3. DICLOFENAC SODIUM [Concomitant]
  4. OMEPRAZOLE [Concomitant]
  5. DIPYRONE (METAMIZOLE SODIUM) [Concomitant]
  6. MOVICOL (MACROGOL,  POTASSIUM CHLORIDE, SODIUM BICARBONATE, SODIUM CHL [Concomitant]

REACTIONS (4)
  - CLOSTRIDIUM DIFFICILE COLITIS [None]
  - DIZZINESS [None]
  - GENERAL PHYSICAL HEALTH DETERIORATION [None]
  - PNEUMONIA [None]
